FAERS Safety Report 20825080 (Version 1)
Quarter: 2022Q2

REPORT INFORMATION
  Report Type: Report from Study
  Country: FR (occurrence: FR)
  Receive Date: 20220513
  Receipt Date: 20220513
  Transmission Date: 20220721
  Serious: Yes (Hospitalization)
  Sender: FDA-Public Use
  Company Number: FR-SERVIER-S22004746

PATIENT

DRUGS (8)
  1. PEGASPARGASE [Suspect]
     Active Substance: PEGASPARGASE
     Indication: Acute lymphocytic leukaemia
     Dosage: 2550 IU, D15,D43
     Route: 042
     Dates: start: 20220314
  2. CYCLOPHOSPHAMIDE [Concomitant]
     Active Substance: CYCLOPHOSPHAMIDE
     Indication: Acute lymphocytic leukaemia
     Dosage: 980 IU, D1 TO D14, D29 TO D42
     Route: 042
     Dates: start: 20220228
  3. MERCAPTOPURINE [Concomitant]
     Active Substance: MERCAPTOPURINE
     Indication: Acute lymphocytic leukaemia
     Dosage: 56 MG, D1 TO D29
     Route: 048
     Dates: start: 20220228
  4. CYTARABINE [Concomitant]
     Active Substance: CYTARABINE
     Indication: Acute lymphocytic leukaemia
     Dosage: 73 MG, D3 TO D6, D10 TO D13, D31 TO D34
     Route: 065
     Dates: start: 20220302
  5. CYTARABINE [Concomitant]
     Active Substance: CYTARABINE
     Dosage: 30 MG, D1 TO D31
     Route: 037
     Dates: start: 20220302
  6. METHOTREXATE [Concomitant]
     Active Substance: METHOTREXATE
     Indication: Acute lymphocytic leukaemia
     Dosage: 12 MG, D1 TO D31
     Route: 037
     Dates: start: 20220302
  7. HYDROCORTISONE [Concomitant]
     Active Substance: HYDROCORTISONE
     Indication: Acute lymphocytic leukaemia
     Dosage: 15 MG, D1 TO D31
     Route: 037
     Dates: start: 20220302
  8. VINCRISTINE [Concomitant]
     Active Substance: VINCRISTINE
     Indication: Acute lymphocytic leukaemia
     Dosage: 1.4 MG, D15, D22, D43, D50
     Route: 042
     Dates: start: 20220314

REACTIONS (1)
  - Escherichia pyelonephritis [Recovering/Resolving]

NARRATIVE: CASE EVENT DATE: 20220421
